FAERS Safety Report 7913930-0 (Version None)
Quarter: 2011Q4

REPORT INFORMATION
  Report Type: 
  Country: None (occurrence: None)
  Receive Date: 20111115
  Receipt Date: 20111115
  Transmission Date: 20120403
  Serious: Yes (Hospitalization, Other)
  Sender: FDA-Public Use
  Company Number: DE-PFIZER INC-2008071656

PATIENT
  Age: 60 Year
  Sex: Male
  Weight: 73 kg

DRUGS (2)
  1. HYDROCORTISONE [Concomitant]
     Dosage: UNK
     Dates: start: 19981130
  2. SOMATROPIN [Suspect]
     Indication: HYPOPITUITARISM
     Dosage: 0.15 MG, 1X/DAY
     Route: 058
     Dates: start: 20010711, end: 20080522

REACTIONS (1)
  - RENAL CELL CARCINOMA [None]
